FAERS Safety Report 10137743 (Version 1)
Quarter: 2014Q2

REPORT INFORMATION
  Report Type: Spontaneous
  Country: US (occurrence: None)
  Receive Date: 20140428
  Receipt Date: 20140428
  Transmission Date: 20141212
  Serious: Yes (Other)
  Sender: FDA-Public Use
  Company Number: None

PATIENT
  Age: 64 Year
  Sex: Female
  Weight: 104.33 kg

DRUGS (1)
  1. METFORMIN HCL [Suspect]
     Indication: TYPE 2 DIABETES MELLITUS
     Dosage: TAKEN 3 TIMES A DAY.
     Route: 048

REACTIONS (4)
  - Muscle spasms [None]
  - Flushing [None]
  - Ocular hyperaemia [None]
  - Dysgeusia [None]
